FAERS Safety Report 9911617 (Version 2)
Quarter: 2014Q1

REPORT INFORMATION
  Report Type: Report from Study
  Country: US (occurrence: US)
  Receive Date: 20140219
  Receipt Date: 20140310
  Transmission Date: 20141002
  Serious: Yes (Other)
  Sender: FDA-Public Use
  Company Number: PHEH2014US003057

PATIENT
  Sex: Male
  Weight: 55.33 kg

DRUGS (1)
  1. GILENYA [Suspect]
     Indication: MULTIPLE SCLEROSIS
     Dosage: 0.5 MG, QD
     Route: 048
     Dates: start: 20120724

REACTIONS (14)
  - Convulsion [Unknown]
  - Vertebrobasilar insufficiency [Unknown]
  - Syncope [Unknown]
  - Loss of consciousness [Unknown]
  - Central nervous system function test abnormal [Unknown]
  - Memory impairment [Unknown]
  - Pain in extremity [Unknown]
  - Chest pain [Unknown]
  - Malaise [Unknown]
  - Fatigue [Unknown]
  - Anxiety [Unknown]
  - Hypoaesthesia [Unknown]
  - Depression [Unknown]
  - Dizziness [Unknown]
